FAERS Safety Report 7915455-5 (Version None)
Quarter: 2011Q4

REPORT INFORMATION
  Report Type: 
  Country: None (occurrence: None)
  Receive Date: 20111115
  Receipt Date: 20111102
  Transmission Date: 20120403
  Serious: Yes (Hospitalization)
  Sender: FDA-Public Use
  Company Number: CH-ELI_LILLY_AND_COMPANY-CH201110003929

PATIENT
  Age: 25 Year
  Sex: Male

DRUGS (16)
  1. ZYPREXA [Suspect]
     Dosage: 30 MG, QD
     Route: 048
     Dates: start: 20101019, end: 20110221
  2. ABILIFY [Concomitant]
     Dosage: 10 MG, QD
     Route: 048
     Dates: start: 20100807, end: 20101208
  3. ABILIFY [Concomitant]
     Dosage: 15 MG, QD
     Route: 048
     Dates: start: 20110125, end: 20110704
  4. ZYPREXA [Suspect]
     Dosage: 40 MG, QD
     Route: 048
     Dates: start: 20100814, end: 20101018
  5. ABILIFY [Concomitant]
     Dosage: 30 MG, QD
     Route: 048
     Dates: start: 20110709
  6. LORAZEPAM [Concomitant]
     Dosage: 2 MG, QD
     Route: 048
     Dates: start: 20110304, end: 20110401
  7. LORAZEPAM [Concomitant]
     Dosage: 1 MG, QD
     Route: 048
     Dates: start: 20110416
  8. ABILIFY [Concomitant]
     Dosage: 20 MG, QD
     Route: 048
     Dates: start: 20101213, end: 20110124
  9. LORAZEPAM [Concomitant]
     Dosage: 2.5 MG, QD
     Route: 048
     Dates: start: 20110120, end: 20110303
  10. ZYPREXA [Suspect]
     Dosage: 5 MG, QD
     Route: 048
     Dates: start: 20110726, end: 20110803
  11. ABILIFY [Concomitant]
     Dosage: 15 MG, QD
     Route: 048
     Dates: start: 20101209, end: 20101212
  12. ZYPREXA [Suspect]
     Dosage: 20 MG, QD
     Route: 048
     Dates: start: 20110222, end: 20110704
  13. ZYPREXA [Suspect]
     Dosage: 15 MG, QD
     Route: 048
     Dates: start: 20110705, end: 20110711
  14. ZYPREXA [Suspect]
     Dosage: 10 MG, QD
     Route: 048
     Dates: start: 20110712, end: 20110725
  15. ABILIFY [Concomitant]
     Dosage: 20 MG, QD
     Route: 048
     Dates: start: 20110705, end: 20110708
  16. LORAZEPAM [Concomitant]
     Dosage: 1.5 MG, QD
     Route: 048
     Dates: start: 20110402, end: 20110415

REACTIONS (7)
  - SUBDURAL HAEMATOMA [None]
  - HOSPITALISATION [None]
  - OVERDOSE [None]
  - OBSESSIVE-COMPULSIVE DISORDER [None]
  - CATATONIA [None]
  - FALL [None]
  - STRESS [None]
